FAERS Safety Report 19905782 (Version 4)
Quarter: 2021Q4

REPORT INFORMATION
  Report Type: Spontaneous
  Country: IT (occurrence: IT)
  Receive Date: 20211001
  Receipt Date: 20211115
  Transmission Date: 20220303
  Serious: Yes (Other)
  Sender: FDA-Public Use
  Company Number: None

PATIENT
  Age: 72 Year
  Sex: Female

DRUGS (3)
  1. FILGRASTIM [Suspect]
     Active Substance: FILGRASTIM
     Indication: Colony stimulating factor therapy
     Dosage: 30 MIU, CYCLIC (MU/ 0.5 ML)
     Dates: start: 20210807, end: 20210812
  2. CISPLATIN [Concomitant]
     Active Substance: CISPLATIN
     Indication: Osteosarcoma
     Dosage: 64 MG
     Route: 042
     Dates: start: 20210803, end: 20210805
  3. DOXORUBICIN HYDROCHLORIDE [Concomitant]
     Active Substance: DOXORUBICIN HYDROCHLORIDE
     Indication: Osteosarcoma
     Dosage: 25 MG
     Route: 042
     Dates: start: 20210803, end: 20210805

REACTIONS (3)
  - Neutrophil count decreased [Recovered/Resolved]
  - Platelet count decreased [Recovered/Resolved]
  - Drug ineffective [Recovered/Resolved]

NARRATIVE: CASE EVENT DATE: 20210813
